FAERS Safety Report 8109541-7 (Version None)
Quarter: 2012Q1

REPORT INFORMATION
  Report Type: 
  Country: None (occurrence: None)
  Receive Date: 20120202
  Receipt Date: 20120113
  Transmission Date: 20120608
  Serious: No
  Sender: FDA-Public Use
  Company Number: US-AMGEN-USASP2011064423

PATIENT
  Age: 57 Year
  Sex: Female

DRUGS (17)
  1. MEDROL [Concomitant]
  2. METHOTREXATE [Concomitant]
     Dosage: UNK UNK, QWK
     Dates: start: 20080811
  3. TRAMADOL HCL [Concomitant]
     Dosage: 50 MG, UNK
  4. VITAMIN D [Concomitant]
     Dosage: 50000 IU, UNK
  5. AMBIEN [Concomitant]
     Dosage: UNK UNK, QHS
  6. ENBREL [Suspect]
     Indication: RHEUMATOID ARTHRITIS
     Dosage: 50 MG, UNK
     Dates: start: 20090129
  7. ULTRAM [Concomitant]
     Dosage: 50 MG, PRN
  8. SYNTHROID [Concomitant]
  9. ATIVAN [Concomitant]
     Dosage: 0.5 MG, QD
  10. LEXAPRO [Concomitant]
  11. SKELAXIN [Concomitant]
     Dosage: UNK UNK, BID
  12. MEDROL [Concomitant]
  13. ENBREL [Suspect]
     Dosage: 50 MG, QWK
     Dates: start: 20081201
  14. LITHIUM CARBONATE [Concomitant]
     Dosage: 300 MG, BID
  15. RELAFEN [Concomitant]
     Dosage: 750 MG, BID
  16. PLAQUENIL [Concomitant]
     Dosage: UNK UNK, BID
  17. FOLIC ACID [Concomitant]

REACTIONS (6)
  - DENTAL CARIES [None]
  - LYMPHADENOPATHY [None]
  - TOOTH INFECTION [None]
  - TOOTH EXTRACTION [None]
  - SINUSITIS [None]
  - NASOPHARYNGITIS [None]
